FAERS Safety Report 15157896 (Version 1)
Quarter: 2018Q3

REPORT INFORMATION
  Report Type: Spontaneous
  Country: US (occurrence: US)
  Receive Date: 20180718
  Receipt Date: 20180718
  Transmission Date: 20181010
  Serious: No
  Sender: FDA-Public Use
  Company Number: US-PFIZER INC-2018266677

PATIENT
  Age: 4 Year
  Sex: Male

DRUGS (1)
  1. GENOTROPIN [Suspect]
     Active Substance: SOMATROPIN
     Indication: WOLF-HIRSCHHORN SYNDROME
     Dosage: 0.7 MG, DAILY (6 DAYS)
     Dates: start: 20160602

REACTIONS (7)
  - Polydipsia [Unknown]
  - Pituitary cyst [Unknown]
  - Product use in unapproved indication [Unknown]
  - Injection site swelling [Unknown]
  - Drug dose omission [Unknown]
  - Injection site pain [Unknown]
  - Weight gain poor [Unknown]
